FAERS Safety Report 8909159 (Version 4)
Quarter: 2013Q3

REPORT INFORMATION
  Report Type: Spontaneous
  Country: US (occurrence: US)
  Receive Date: 20121114
  Receipt Date: 20130827
  Transmission Date: 20140515
  Serious: Yes (Hospitalization, Other)
  Sender: FDA-Public Use
  Company Number: PHHY2012US104072

PATIENT
  Sex: Female
  Weight: 90.71 kg

DRUGS (11)
  1. TRILEPTAL [Suspect]
     Indication: CONVULSION
     Dosage: UNK UKN, UNK
  2. LYRICA [Suspect]
     Indication: NEUROPATHY PERIPHERAL
     Dosage: 150 MG, DAILY
  3. LYRICA [Suspect]
     Dosage: 150 MG, BID
     Route: 048
  4. LYRICA [Suspect]
     Dosage: 225 MG, BID
  5. LYRICA [Suspect]
     Dosage: 150 MG, BID
  6. DILANTIN [Suspect]
     Indication: NEUROPATHY PERIPHERAL
     Dosage: UNK UKN, UNK
  7. ZOLOFT [Suspect]
     Indication: DEPRESSION
     Dosage: 100 MG, UNK
  8. LORAZEPAM [Concomitant]
     Indication: ANXIETY
  9. PRAMIPEXOLE DIHYDROCHLORIDE [Concomitant]
     Indication: RESTLESS LEGS SYNDROME
  10. FUROSEMIDE [Concomitant]
  11. METOPROLOL [Concomitant]
     Indication: BLOOD PRESSURE ABNORMAL

REACTIONS (24)
  - Bladder spasm [Unknown]
  - Urinary incontinence [Unknown]
  - Loss of consciousness [Unknown]
  - Cardiac failure [Unknown]
  - Respiratory failure [Unknown]
  - Hernia [Unknown]
  - Diabetes mellitus [Unknown]
  - Spinal cord injury [Unknown]
  - Pneumonia [Unknown]
  - Chronic obstructive pulmonary disease [Not Recovered/Not Resolved]
  - Local swelling [Not Recovered/Not Resolved]
  - Vitamin B12 decreased [Unknown]
  - Blood calcium decreased [Unknown]
  - Muscle spasms [Unknown]
  - Influenza like illness [Unknown]
  - Insomnia [Unknown]
  - Weight decreased [Unknown]
  - Weight increased [Not Recovered/Not Resolved]
  - Malaise [Unknown]
  - Pain in extremity [Not Recovered/Not Resolved]
  - Nausea [Unknown]
  - Alopecia [Unknown]
  - Visual impairment [Not Recovered/Not Resolved]
  - Convulsion [Recovered/Resolved]
